APPROVED DRUG PRODUCT: LARIN 1/20
Active Ingredient: ETHINYL ESTRADIOL; NORETHINDRONE ACETATE
Strength: 0.02MG;1MG
Dosage Form/Route: TABLET;ORAL-21
Application: A202995 | Product #001 | TE Code: AB
Applicant: NOVAST LABORATORIES LTD
Approved: Dec 4, 2013 | RLD: No | RS: No | Type: RX